FAERS Safety Report 24658043 (Version 1)
Quarter: 2024Q4

REPORT INFORMATION
  Report Type: Spontaneous
  Country: US (occurrence: US)
  Receive Date: 20241125
  Receipt Date: 20241125
  Transmission Date: 20250114
  Serious: No
  Sender: BIOGEN
  Company Number: US-BIOGEN-2020BI00841561

PATIENT
  Sex: Female

DRUGS (2)
  1. TYSABRI [Suspect]
     Active Substance: NATALIZUMAB
     Indication: Multiple sclerosis
     Route: 050
     Dates: start: 20090922, end: 20170915
  2. TYSABRI [Suspect]
     Active Substance: NATALIZUMAB
     Dosage: AGAIN STARTED FROM 24-APR-2018
     Route: 050
     Dates: start: 20080411, end: 20090618

REACTIONS (1)
  - Visual impairment [Unknown]
